FAERS Safety Report 8515261-7 (Version None)
Quarter: 2012Q3

REPORT INFORMATION
  Report Type: 
  Country: None (occurrence: None)
  Receive Date: 20120717
  Receipt Date: 20120709
  Transmission Date: 20120928
  Serious: Yes (Hospitalization)
  Sender: FDA-Public Use
  Company Number: US-B.I. PHARMACEUTICALS,INC./RIDGEFIELD-2012-BP-15740BP

PATIENT
  Sex: Female

DRUGS (1)
  1. COMBIVENT [Suspect]

REACTIONS (2)
  - FALL [None]
  - FACIAL BONES FRACTURE [None]
